FAERS Safety Report 17306147 (Version 1)
Quarter: 2020Q1

REPORT INFORMATION
  Report Type: Spontaneous
  Country: US (occurrence: US)
  Receive Date: 20200123
  Receipt Date: 20200123
  Transmission Date: 20200409
  Serious: Yes (Other)
  Sender: FDA-Public Use
  Company Number: US-INFO-000916

PATIENT
  Age: 27 Year
  Sex: Female

DRUGS (4)
  1. CERVIDIL [Concomitant]
     Active Substance: DINOPROSTONE
     Route: 065
  2. PITOCIN 10UNITS/500ML LACTATED RINGERS [Concomitant]
     Route: 065
  3. ROPIVACAINE INJECTION [Suspect]
     Active Substance: ROPIVACAINE
     Indication: EPIDURAL ANAESTHESIA
     Dosage: 0.2% AT 8ML/HR, 2ML BOLUS EVERY 10 MINUTES AS NEEDED, MAX 20ML/HR
     Route: 008
  4. EPHEDRINE. [Concomitant]
     Active Substance: EPHEDRINE
     Indication: BLOOD PRESSURE DECREASED
     Route: 065

REACTIONS (2)
  - Drug ineffective [Unknown]
  - Medication error [Unknown]

NARRATIVE: CASE EVENT DATE: 20191219
